FAERS Safety Report 5852847-2 (Version None)
Quarter: 2008Q3

REPORT INFORMATION
  Report Type: 
  Country: None (occurrence: None)
  Receive Date: 20080821
  Receipt Date: 20080818
  Transmission Date: 20090109
  Serious: Yes (Hospitalization, Other)
  Sender: FDA-Public Use
  Company Number: ES-ASTRAZENECA-2008AC02208

PATIENT
  Age: 39 Year
  Sex: Female

DRUGS (4)
  1. SEROQUEL [Suspect]
     Indication: BIPOLAR DISORDER
     Route: 048
     Dates: start: 20071008, end: 20080225
  2. HIDOALTESONA (HYDROCOORTISONE) [Concomitant]
  3. LITHIUM CARBONATE [Concomitant]
     Indication: BIPOLAR DISORDER
     Dates: start: 19940219
  4. RIVOTRIL [Concomitant]
     Route: 048
     Dates: start: 19950503

REACTIONS (3)
  - BIPOLAR DISORDER [None]
  - DRUG INEFFECTIVE [None]
  - MANIA [None]
